FAERS Safety Report 19698070 (Version 1)
Quarter: 2021Q3

REPORT INFORMATION
  Report Type: Spontaneous
  Country: US (occurrence: US)
  Receive Date: 20210813
  Receipt Date: 20210813
  Transmission Date: 20211014
  Serious: Yes (Other)
  Sender: FDA-Public Use
  Company Number: US-SPECGX-T202100907

PATIENT
  Age: 35 Year
  Sex: Male
  Weight: 145 kg

DRUGS (1)
  1. OXYCODONE [Suspect]
     Active Substance: OXYCODONE
     Indication: PAIN
     Dosage: 300 MILLIGRAM, QD
     Route: 065

REACTIONS (3)
  - Drug tolerance [Unknown]
  - Drug dependence [Unknown]
  - Therapeutic product effect incomplete [Unknown]
